FAERS Safety Report 15729639 (Version 1)
Quarter: 2018Q4

REPORT INFORMATION
  Report Type: Spontaneous
  Country: JP (occurrence: JP)
  Receive Date: 20181217
  Receipt Date: 20181217
  Transmission Date: 20190205
  Serious: Yes (Death, Hospitalization, Other)
  Sender: FDA-Public Use
  Company Number: JP-SA-2018SA341055

PATIENT
  Age: 6 Decade
  Sex: Male

DRUGS (10)
  1. VANCOMYCIN [Concomitant]
     Active Substance: VANCOMYCIN
     Dosage: UNK
     Dates: start: 201804
  2. METHOTREXATE. [Concomitant]
     Active Substance: METHOTREXATE
     Dosage: UNK
     Dates: start: 201704
  3. ADALIMUMAB RECOMBINANT [Concomitant]
     Active Substance: ADALIMUMAB
     Dosage: UNK
     Dates: start: 201707
  4. LEVOFLOXACIN. [Suspect]
     Active Substance: LEVOFLOXACIN
     Indication: TUBERCULOMA OF CENTRAL NERVOUS SYSTEM
     Dosage: TABLET
     Dates: start: 201803
  5. RIFADIN [Suspect]
     Active Substance: RIFAMPIN
     Indication: TUBERCULOMA OF CENTRAL NERVOUS SYSTEM
     Dosage: UNK
     Dates: start: 201803
  6. CICLOSPORIN [Concomitant]
     Active Substance: CYCLOSPORINE
     Dosage: UNK
     Dates: start: 201704
  7. STREPTOMYCIN SULPHATE [Concomitant]
     Dosage: UNK
     Dates: start: 201803
  8. PREDNISOLONE. [Concomitant]
     Active Substance: PREDNISOLONE
     Dosage: UNK
     Dates: start: 201605, end: 201704
  9. MEROPENEM. [Concomitant]
     Active Substance: MEROPENEM
     Dosage: UNK
     Dates: start: 201804
  10. ISCOTIN [Suspect]
     Active Substance: ISONIAZID
     Indication: TUBERCULOMA OF CENTRAL NERVOUS SYSTEM
     Dosage: UNK
     Dates: start: 201803

REACTIONS (5)
  - Cerebral haemorrhage [Fatal]
  - Pyrexia [Unknown]
  - Renal disorder [Unknown]
  - Brain abscess [Unknown]
  - Seizure [Unknown]

NARRATIVE: CASE EVENT DATE: 201804
